FAERS Safety Report 4926247-3 (Version None)
Quarter: 2006Q1

REPORT INFORMATION
  Report Type: 
  Country: None (occurrence: None)
  Receive Date: 20060228
  Receipt Date: 20051216
  Transmission Date: 20060701
  Serious: No
  Sender: FDA-Public Use
  Company Number: US-GLAXOSMITHKLINE-A0586103A

PATIENT
  Age: 50 Year
  Sex: Male

DRUGS (7)
  1. LAMICTAL [Suspect]
     Indication: BIPOLAR DISORDER
     Dosage: 25MG PER DAY
     Route: 048
     Dates: start: 20051119
  2. DEPAKOTE [Concomitant]
  3. VISTARIL [Concomitant]
  4. LORAZEPAM [Concomitant]
     Route: 065
  5. ZOCOR [Concomitant]
  6. PREVACID [Concomitant]
  7. LISINOPRIL [Concomitant]

REACTIONS (3)
  - ANXIETY [None]
  - DEPRESSION [None]
  - DRUG INEFFECTIVE [None]
